FAERS Safety Report 14341747 (Version 1)
Quarter: 2018Q1

REPORT INFORMATION
  Report Type: Spontaneous
  Country: JP (occurrence: JP)
  Receive Date: 20180102
  Receipt Date: 20180102
  Transmission Date: 20180509
  Serious: Yes (Other)
  Sender: FDA-Public Use
  Company Number: JP-ROCHE-2047702

PATIENT
  Sex: Female

DRUGS (2)
  1. BONVIVA [Suspect]
     Active Substance: IBANDRONATE SODIUM
     Indication: PRODUCT USED FOR UNKNOWN INDICATION
     Dosage: DOSAGE IS UNCERTAIN.?LAST DOSE ON 07/DEC/2017
     Route: 042
     Dates: start: 2017
  2. LYRICA [Concomitant]
     Active Substance: PREGABALIN
     Dosage: DOSAGE IS UNCERTAIN.
     Route: 048
     Dates: end: 2017

REACTIONS (4)
  - Hypoaesthesia [Unknown]
  - Internal haemorrhage [Not Recovered/Not Resolved]
  - Dry skin [Unknown]
  - Somnolence [Unknown]

NARRATIVE: CASE EVENT DATE: 2017
